FAERS Safety Report 5691824-1 (Version None)
Quarter: 2008Q2

REPORT INFORMATION
  Report Type: 
  Country: None (occurrence: None)
  Receive Date: 20080401
  Receipt Date: 20080401
  Transmission Date: 20081010
  Serious: No
  Sender: FDA-Public Use
  Company Number: None

PATIENT
  Age: 4 Year
  Sex: Female
  Weight: 17.2367 kg

DRUGS (3)
  1. SINGULAIR [Suspect]
     Indication: ASTHMA
     Dosage: 4 MG Q PM PO
     Route: 048
     Dates: start: 20080310, end: 20080326
  2. SINGULAIR [Suspect]
     Indication: COUGH
     Dosage: 4 MG Q PM PO
     Route: 048
     Dates: start: 20080310, end: 20080326
  3. SINGULAIR [Suspect]
     Indication: HYPERSENSITIVITY
     Dosage: 4 MG Q PM PO
     Route: 048
     Dates: start: 20080310, end: 20080326

REACTIONS (5)
  - CONVERSION DISORDER [None]
  - CRYING [None]
  - FEELING ABNORMAL [None]
  - INAPPROPRIATE AFFECT [None]
  - MOOD SWINGS [None]
